FAERS Safety Report 6331359-6 (Version None)
Quarter: 2009Q3

REPORT INFORMATION
  Report Type: 
  Country: None (occurrence: None)
  Receive Date: 20090827
  Receipt Date: 20090817
  Transmission Date: 20100115
  Serious: Yes (Hospitalization)
  Sender: FDA-Public Use
  Company Number: US-WYE-H10600509

PATIENT
  Sex: Male

DRUGS (4)
  1. ADVIL [Suspect]
     Indication: BACK PAIN
     Dosage: UNKNOWN
     Route: 048
     Dates: end: 20090501
  2. LASIX [Concomitant]
     Dosage: UNKNOWN
     Route: 065
  3. METOPROLOL [Concomitant]
     Dosage: UNKNOWN
     Route: 065
  4. LISINOPRIL [Suspect]
     Indication: BLOOD PRESSURE
     Route: 048
     Dates: start: 20080101, end: 20090620

REACTIONS (1)
  - ANAEMIA HAEMOLYTIC AUTOIMMUNE [None]
